FAERS Safety Report 4385441-3 (Version None)
Quarter: 2004Q2

REPORT INFORMATION
  Report Type: 
  Country: None (occurrence: None)
  Receive Date: 20040628
  Receipt Date: 20040427
  Transmission Date: 20050107
  Serious: Yes (Hospitalization)
  Sender: FDA-Public Use
  Company Number: PHBS2004JP05823

PATIENT
  Age: 83 Year
  Sex: Female
  Weight: 70 kg

DRUGS (7)
  1. TEGRETOL [Suspect]
     Indication: TRIGEMINAL NEURALGIA
     Dosage: 200 MG, BID
     Route: 048
     Dates: start: 20040410, end: 20040412
  2. ETODOLAC [Suspect]
     Indication: TRIGEMINAL NEURALGIA
     Dosage: 200 MG, BID
     Route: 048
     Dates: start: 20040410, end: 20040412
  3. EPERISONE HYDROCHLORIDE [Suspect]
     Indication: TRIGEMINAL NEURALGIA
     Dosage: 50 MG, BID
     Route: 048
     Dates: start: 20040410, end: 20040412
  4. DILTIAZEM HYDROCHLORIDE [Suspect]
     Indication: HYPERTENSION
     Dosage: 30 MG/DAY
     Route: 048
     Dates: start: 20030616
  5. BAYASPIRIN [Suspect]
     Indication: CEREBRAL INFARCTION
     Dosage: 100 MG/DAY
     Route: 048
     Dates: start: 20030616
  6. SERMION [Suspect]
     Indication: CEREBRAL INFARCTION
     Dosage: 5 MG, BID
     Route: 048
     Dates: start: 20030616
  7. ARICEPT [Suspect]
     Indication: DEMENTIA ALZHEIMER'S TYPE
     Dosage: 5 MG/DAY
     Route: 048
     Dates: start: 20020101

REACTIONS (12)
  - CEREBRAL INFARCTION [None]
  - CIRCULATORY COLLAPSE [None]
  - COMMUNICATION DISORDER [None]
  - CONVULSIONS LOCAL [None]
  - DIZZINESS [None]
  - DRUG INTERACTION [None]
  - DYSSTASIA [None]
  - FALL [None]
  - GAIT DISTURBANCE [None]
  - INCONTINENCE [None]
  - MIGRAINE [None]
  - MUSCULAR WEAKNESS [None]
